FAERS Safety Report 5797535-6 (Version None)
Quarter: 2008Q2

REPORT INFORMATION
  Report Type: 
  Country: None (occurrence: None)
  Receive Date: 20080618
  Receipt Date: 20071005
  Transmission Date: 20081010
  Serious: Yes (Other)
  Sender: FDA-Public Use
  Company Number: 200717101US

PATIENT
  Age: 60 Year
  Sex: Female

DRUGS (7)
  1. LANTUS [Suspect]
     Indication: TYPE 2 DIABETES MELLITUS
     Dosage: 12 IU HS
     Dates: start: 20040101
  2. OPTICLICK [Suspect]
     Indication: TYPE 2 DIABETES MELLITUS
     Dates: start: 20070101, end: 20071001
  3. ACTONEL [Concomitant]
  4. AVAPRO [Concomitant]
  5. POTASSIUM CHLORIDE [Concomitant]
  6. FUROSEMDIE (LASIX /00032601/) [Concomitant]
  7. METFORMIN, GLIBENCLAMIDE (GLUCOVANCE /01503701/) [Concomitant]

REACTIONS (4)
  - BLOOD GLUCOSE INCREASED [None]
  - HYPERHIDROSIS [None]
  - HYPOGLYCAEMIA [None]
  - PALLOR [None]
